FAERS Safety Report 5407152-5 (Version None)
Quarter: 2007Q3

REPORT INFORMATION
  Report Type: 
  Country: None (occurrence: None)
  Receive Date: 20070803
  Receipt Date: 20070803
  Transmission Date: 20080115
  Serious: Yes (Hospitalization)
  Sender: FDA-Public Use
  Company Number: None

PATIENT
  Sex: Male
  Weight: 76.8 kg

DRUGS (7)
  1. CISPLATIN [Suspect]
     Dosage: 199 MG
     Dates: end: 20070716
  2. MIRALAX [Concomitant]
  3. MORPHINE [Concomitant]
  4. PERIDEX SOLUTION [Concomitant]
  5. PROTONIX SUSPENSION [Concomitant]
  6. REGLAN [Concomitant]
  7. LORAZEPAM [Concomitant]

REACTIONS (4)
  - DEHYDRATION [None]
  - MUCOSAL INFLAMMATION [None]
  - NAUSEA [None]
  - PAIN [None]
